FAERS Safety Report 5591923-9 (Version None)
Quarter: 2008Q1

REPORT INFORMATION
  Report Type: 
  Country: None (occurrence: None)
  Receive Date: 20080115
  Receipt Date: 20080107
  Transmission Date: 20080703
  Serious: Yes (Hospitalization)
  Sender: FDA-Public Use
  Company Number: FR-ELI_LILLY_AND_COMPANY-FR200709002766

PATIENT
  Age: 76 Year
  Sex: Female
  Weight: 65 kg

DRUGS (8)
  1. FORTEO [Suspect]
     Indication: OSTEOPOROSIS
     Dosage: 20 UG, DAILY (1/D)
     Route: 058
     Dates: start: 20060903
  2. GLUCOPHAGE [Concomitant]
     Dosage: 1 D/F, DAILY (1/D)
     Route: 048
  3. COAPROVEL [Concomitant]
     Dosage: 1 D/F, DAILY (1/D)
     Route: 048
  4. LOXEN [Concomitant]
     Dosage: 1 D/F, 2/D
     Route: 048
  5. CALTRATE [Concomitant]
  6. ESBERIVEN /00021901/ [Concomitant]
     Dosage: 2 D/F, DAILY (1/D)
     Route: 048
  7. DAFALGAN [Concomitant]
     Dosage: 3 G, DAILY (1/D)
     Route: 048
  8. LESCOL [Concomitant]
     Dosage: 1 D/F, DAILY (1/D)
     Route: 048

REACTIONS (1)
  - FEMORAL NECK FRACTURE [None]
